FAERS Safety Report 13290344 (Version 1)
Quarter: 2017Q1

REPORT INFORMATION
  Report Type: Spontaneous
  Country: US (occurrence: US)
  Receive Date: 20170302
  Receipt Date: 20170302
  Transmission Date: 20170428
  Serious: No
  Sender: FDA-Public Use
  Company Number: US-FRESENIUS KABI-FK201701656

PATIENT
  Age: 36 Year
  Sex: Female

DRUGS (1)
  1. PROGESTERONE INJECTION USP [Suspect]
     Active Substance: PROGESTERONE
     Indication: HORMONE THERAPY
     Route: 030
     Dates: start: 201702

REACTIONS (2)
  - Product use issue [Unknown]
  - Rash [Not Recovered/Not Resolved]

NARRATIVE: CASE EVENT DATE: 201702
